FAERS Safety Report 5824927-9 (Version None)
Quarter: 2008Q3

REPORT INFORMATION
  Report Type: 
  Country: None (occurrence: None)
  Receive Date: 20080728
  Receipt Date: 20080717
  Transmission Date: 20090109
  Serious: Yes (Hospitalization)
  Sender: FDA-Public Use
  Company Number: FR-PFIZER INC-2007088094

PATIENT
  Age: 12 Month
  Sex: Male

DRUGS (3)
  1. CEFPODOXIME PROXETIL [Suspect]
     Indication: EAR INFECTION
     Route: 048
  2. AMOXICILLIN [Concomitant]
  3. MEASLES-MUMPS-RUBELLA VIRUS VACCINE [Concomitant]

REACTIONS (3)
  - HAEMATOMA [None]
  - PALLOR [None]
  - THROMBOCYTOPENIA [None]
